FAERS Safety Report 5320642-9 (Version None)
Quarter: 2007Q2

REPORT INFORMATION
  Report Type: 
  Country: None (occurrence: None)
  Receive Date: 20070509
  Receipt Date: 20070428
  Transmission Date: 20071010
  Serious: Yes (Hospitalization, Other)
  Sender: FDA-Public Use
  Company Number: US-PFIZER INC-2007012302

PATIENT
  Sex: Female
  Weight: 56.7 kg

DRUGS (4)
  1. CORTEF [Suspect]
     Indication: ADDISON'S DISEASE
  2. HYDROCHLOROTHIAZIDE [Concomitant]
  3. FLORINEF [Concomitant]
  4. POTASSIUM ACETATE [Concomitant]

REACTIONS (6)
  - ABDOMINAL PAIN UPPER [None]
  - ASTHENIA [None]
  - BLOOD CHOLESTEROL INCREASED [None]
  - BREAST CANCER [None]
  - MUSCLE SPASMS [None]
  - VOMITING [None]
